FAERS Safety Report 15941329 (Version 2)
Quarter: 2019Q1

REPORT INFORMATION
  Report Type: Spontaneous
  Country: US (occurrence: US)
  Receive Date: 20190208
  Receipt Date: 20190215
  Transmission Date: 20190417
  Serious: Yes (Other)
  Sender: FDA-Public Use
  Company Number: US-ASTRAZENECA-2018SF26148

PATIENT
  Age: 15793 Day
  Sex: Male

DRUGS (19)
  1. NEXIUM [Suspect]
     Active Substance: ESOMEPRAZOLE MAGNESIUM
     Route: 048
     Dates: start: 2007, end: 2009
  2. PRILOSEC OTC [Suspect]
     Active Substance: OMEPRAZOLE MAGNESIUM
     Route: 048
     Dates: start: 2007, end: 2012
  3. COLCHICINE. [Concomitant]
     Active Substance: COLCHICINE
  4. PRILOSEC [Suspect]
     Active Substance: OMEPRAZOLE MAGNESIUM
     Route: 048
     Dates: start: 20131220
  5. LISINOPRIL. [Concomitant]
     Active Substance: LISINOPRIL
  6. CIPRO [Concomitant]
     Active Substance: CIPROFLOXACIN HYDROCHLORIDE
  7. NEXIUM [Suspect]
     Active Substance: ESOMEPRAZOLE MAGNESIUM
     Route: 048
     Dates: start: 20100805, end: 20161004
  8. METOPROLOL. [Concomitant]
     Active Substance: METOPROLOL
  9. SIMVASTATIN. [Concomitant]
     Active Substance: SIMVASTATIN
  10. LASIX [Concomitant]
     Active Substance: FUROSEMIDE
  11. PRILOSEC OTC [Suspect]
     Active Substance: OMEPRAZOLE MAGNESIUM
     Route: 048
     Dates: start: 20100805, end: 20161004
  12. NICORETTE [Concomitant]
     Active Substance: NICOTINE
  13. SPIRONOLACTONE. [Concomitant]
     Active Substance: SPIRONOLACTONE
  14. COLCRYS [Concomitant]
     Active Substance: COLCHICINE
  15. ULORIC [Concomitant]
     Active Substance: FEBUXOSTAT
  16. PRILOSEC [Suspect]
     Active Substance: OMEPRAZOLE MAGNESIUM
     Route: 048
     Dates: start: 2007, end: 2014
  17. PRILOSEC [Suspect]
     Active Substance: OMEPRAZOLE MAGNESIUM
     Route: 048
     Dates: start: 20100805, end: 20161004
  18. ALLOPURINOL. [Concomitant]
     Active Substance: ALLOPURINOL
  19. INDOMETHACIN. [Concomitant]
     Active Substance: INDOMETHACIN

REACTIONS (6)
  - End stage renal disease [Unknown]
  - Hyperparathyroidism secondary [Unknown]
  - Acute kidney injury [Unknown]
  - Chronic kidney disease [Unknown]
  - Renal failure [Unknown]
  - Nephrogenic anaemia [Unknown]

NARRATIVE: CASE EVENT DATE: 20100802
